FAERS Safety Report 16989486 (Version 3)
Quarter: 2019Q4

REPORT INFORMATION
  Report Type: Spontaneous
  Country: US (occurrence: US)
  Receive Date: 20191104
  Receipt Date: 20191115
  Transmission Date: 20200122
  Serious: Yes (Hospitalization, Other)
  Sender: FDA-Public Use
  Company Number: US-AMGEN-USASP2019180109

PATIENT
  Age: 76 Year
  Sex: Female

DRUGS (1)
  1. PROLIA [Suspect]
     Active Substance: DENOSUMAB
     Indication: OSTEOPOROSIS POSTMENOPAUSAL
     Dosage: 60 MILLIGRAM, Q6MO
     Route: 065

REACTIONS (12)
  - Rib fracture [Unknown]
  - Hip arthroplasty [Unknown]
  - Ligament rupture [Unknown]
  - Ankle fracture [Unknown]
  - Tooth disorder [Unknown]
  - Rash [Unknown]
  - Trismus [Unknown]
  - Wrist fracture [Unknown]
  - Calcinosis [Unknown]
  - Gingival pain [Unknown]
  - Fall [Unknown]
  - Lymphoedema [Unknown]

NARRATIVE: CASE EVENT DATE: 2018
